FAERS Safety Report 20055039 (Version 1)
Quarter: 2021Q4

REPORT INFORMATION
  Report Type: Spontaneous
  Country: CN (occurrence: CN)
  Receive Date: 20211110
  Receipt Date: 20211110
  Transmission Date: 20220303
  Serious: Yes (Other)
  Sender: FDA-Public Use
  Company Number: CN-PFIZER INC-202101484667

PATIENT
  Age: 39 Year
  Sex: Male
  Weight: 71 kg

DRUGS (14)
  1. SOLU-MEDROL [Suspect]
     Active Substance: METHYLPREDNISOLONE SODIUM SUCCINATE
     Dosage: 1 DF
     Route: 040
     Dates: start: 20211013
  2. EPINEPHRINE HYDROCHLORIDE [Suspect]
     Active Substance: EPINEPHRINE HYDROCHLORIDE
     Dosage: 1 DF
     Route: 058
     Dates: start: 20211013
  3. EPINEPHRINE HYDROCHLORIDE [Suspect]
     Active Substance: EPINEPHRINE HYDROCHLORIDE
     Dosage: 1 DF
     Route: 058
     Dates: start: 20211013
  4. DEXAMETHASONE [Suspect]
     Active Substance: DEXAMETHASONE
     Dosage: 1 DF
     Route: 040
     Dates: start: 20211013
  5. DEXAMETHASONE [Suspect]
     Active Substance: DEXAMETHASONE
     Dosage: 10 MG
     Route: 041
     Dates: start: 20211013
  6. LACTATED RINGERS SOLUTION [Suspect]
     Active Substance: CALCIUM CHLORIDE\POTASSIUM CHLORIDE\SODIUM CHLORIDE\SODIUM LACTATE
     Dosage: 500 ML
     Route: 041
     Dates: start: 20211013
  7. DEXTROSE\SODIUM CHLORIDE [Suspect]
     Active Substance: DEXTROSE\SODIUM CHLORIDE
     Dosage: 500 ML
     Route: 041
     Dates: start: 20211013
  8. DEXTROSE [Suspect]
     Active Substance: DEXTROSE
     Dosage: 100 ML
     Route: 041
     Dates: start: 20211013
  9. DEXTROSE [Suspect]
     Active Substance: DEXTROSE
     Dosage: 250 ML
     Route: 041
     Dates: start: 20211013
  10. DOPAMINE [Suspect]
     Active Substance: DOPAMINE HYDROCHLORIDE
     Dosage: 100 MG(VIA MICRO-PUMP 10 ML/H )
     Dates: start: 20211013
  11. SODIUM CHLORIDE [Suspect]
     Active Substance: SODIUM CHLORIDE
     Dosage: 40 ML(VIA MICRO-PUMP 10 ML/H)
     Dates: start: 20211013
  12. CALCIUM GLUCONATE [Suspect]
     Active Substance: CALCIUM GLUCONATE
     Dosage: 1 DF
     Route: 040
     Dates: start: 20211013
  13. CALCIUM GLUCONATE [Suspect]
     Active Substance: CALCIUM GLUCONATE
     Dosage: 1 DF
     Route: 041
     Dates: start: 20211013
  14. PROMETHAZINE HYDROCHLORIDE [Suspect]
     Active Substance: PROMETHAZINE HYDROCHLORIDE
     Dosage: 1 DF
     Route: 030
     Dates: start: 20211013

REACTIONS (3)
  - Urinary retention [Unknown]
  - Abdominal pain [Unknown]
  - Abdominal distension [Unknown]

NARRATIVE: CASE EVENT DATE: 20211013
